FAERS Safety Report 8218510-8 (Version None)
Quarter: 2012Q1

REPORT INFORMATION
  Report Type: 
  Country: None (occurrence: None)
  Receive Date: 20120319
  Receipt Date: 20120309
  Transmission Date: 20120608
  Serious: Yes (Hospitalization)
  Sender: FDA-Public Use
  Company Number: US-ACTELION-A-US2011-49620

PATIENT

DRUGS (4)
  1. TRACLEER [Suspect]
     Indication: PULMONARY ARTERIAL HYPERTENSION
     Dosage: UNK MG, UNK
     Route: 048
     Dates: start: 20050101, end: 20120220
  2. COUMADIN [Concomitant]
  3. REVATIO [Concomitant]
  4. LASIX [Concomitant]

REACTIONS (12)
  - WALKING DISTANCE TEST ABNORMAL [None]
  - BLOOD POTASSIUM DECREASED [None]
  - OEDEMA [None]
  - BACK PAIN [None]
  - BLOOD ELECTROLYTES ABNORMAL [None]
  - WEIGHT INCREASED [None]
  - HEART RATE IRREGULAR [None]
  - SINUSITIS [None]
  - CONSTIPATION [None]
  - DYSPNOEA [None]
  - ARTHRALGIA [None]
  - FLUID RETENTION [None]
